FAERS Safety Report 5771367-7 (Version None)
Quarter: 2008Q2

REPORT INFORMATION
  Report Type: 
  Country: None (occurrence: None)
  Receive Date: 20080613
  Receipt Date: 20080604
  Transmission Date: 20081010
  Serious: Yes (Hospitalization, Other)
  Sender: FDA-Public Use
  Company Number: US-JNJFOC-20070806121

PATIENT
  Sex: Female
  Weight: 58.06 kg

DRUGS (3)
  1. RISPERDAL [Suspect]
     Indication: PSYCHOTIC DISORDER
  2. RISPERDAL [Suspect]
     Indication: DEPRESSION
  3. ZYPREXA [Suspect]
     Indication: DRUG USE FOR UNKNOWN INDICATION

REACTIONS (3)
  - DIABETES MELLITUS [None]
  - DIABETIC HYPEROSMOLAR COMA [None]
  - RENAL FAILURE ACUTE [None]
